FAERS Safety Report 19117845 (Version 2)
Quarter: 2021Q3

REPORT INFORMATION
  Report Type: Report from Study
  Country: CA (occurrence: CA)
  Receive Date: 20210409
  Receipt Date: 20210927
  Transmission Date: 20211014
  Serious: Yes (Other)
  Sender: FDA-Public Use
  Company Number: PHHY2016CA146558

PATIENT
  Age: 39 Year
  Sex: Female

DRUGS (5)
  1. SANDOSTATIN LAR DEPOT [Suspect]
     Active Substance: OCTREOTIDE ACETATE
     Dosage: 10 MG, QMO (ONCE A MONTH)
     Route: 030
  2. LANTUS [Concomitant]
     Active Substance: INSULIN GLARGINE
     Indication: DIABETES MELLITUS
     Dosage: UNK UNK, QD (AT NIGHT)
     Route: 065
     Dates: start: 2017
  3. SANDOSTATIN LAR DEPOT [Suspect]
     Active Substance: OCTREOTIDE ACETATE
     Indication: ACROMEGALY
     Dosage: 20 MG, QMO (EVERY 4 WEEK)
     Route: 030
     Dates: start: 20150610
  4. SANDOSTATIN LAR DEPOT [Suspect]
     Active Substance: OCTREOTIDE ACETATE
  5. PROMETRIUM [Concomitant]
     Active Substance: PROGESTERONE
     Indication: PRODUCT USED FOR UNKNOWN INDICATION
     Dosage: UNK
     Route: 065

REACTIONS (21)
  - Blood glucose increased [Unknown]
  - Nasal congestion [Recovering/Resolving]
  - Illness [Unknown]
  - Hyperlipidaemia [Unknown]
  - Diarrhoea [Recovered/Resolved]
  - Erythema [Unknown]
  - Blood pressure increased [Unknown]
  - Hypothyroidism [Unknown]
  - Infection [Unknown]
  - Anaemia [Unknown]
  - Eye infection bacterial [Unknown]
  - Ocular hyperaemia [Unknown]
  - Nasopharyngitis [Recovering/Resolving]
  - Injury corneal [Unknown]
  - Carpal tunnel syndrome [Unknown]
  - Nausea [Unknown]
  - Pneumonia [Recovering/Resolving]
  - Fatigue [Recovered/Resolved]
  - Swelling face [Unknown]
  - Gastroenteritis viral [Unknown]
  - Eye infection [Recovered/Resolved]

NARRATIVE: CASE EVENT DATE: 201610
